FAERS Safety Report 7826254-7 (Version None)
Quarter: 2011Q4

REPORT INFORMATION
  Report Type: 
  Country: None (occurrence: None)
  Receive Date: 20111020
  Receipt Date: 20111013
  Transmission Date: 20120403
  Serious: No
  Sender: FDA-Public Use
  Company Number: US-BIOGENIDEC-2011BI001437

PATIENT
  Sex: Male

DRUGS (1)
  1. TYSABRI [Suspect]
     Indication: MULTIPLE SCLEROSIS
     Route: 042
     Dates: start: 20100929, end: 20110902

REACTIONS (8)
  - NUCLEAR MAGNETIC RESONANCE IMAGING ABNORMAL [None]
  - DECREASED INTEREST [None]
  - FATIGUE [None]
  - BALANCE DISORDER [None]
  - ABASIA [None]
  - GAIT DISTURBANCE [None]
  - MYALGIA [None]
  - DRUG INEFFECTIVE [None]
